FAERS Safety Report 9860373 (Version 1)
Quarter: 2014Q1

REPORT INFORMATION
  Report Type: Spontaneous
  Country: US (occurrence: US)
  Receive Date: 20140202
  Receipt Date: 20140202
  Transmission Date: 20141002
  Serious: No
  Sender: FDA-Public Use
  Company Number: US-009507513-1402USA000041

PATIENT
  Age: 78 Year
  Sex: Female

DRUGS (3)
  1. MIRALAX [Suspect]
     Indication: CONSTIPATION
     Dosage: UNK, QD
     Route: 048
     Dates: start: 2013
  2. MIRALAX [Suspect]
     Dosage: UNK, QD
     Route: 048
     Dates: start: 20140110
  3. MIRALAX [Suspect]
     Dosage: UNK, QD
     Route: 048
     Dates: start: 20140111

REACTIONS (3)
  - Abnormal faeces [Unknown]
  - Incorrect drug administration duration [Unknown]
  - Inappropriate schedule of drug administration [Unknown]
